FAERS Safety Report 17611835 (Version 1)
Quarter: 2020Q2

REPORT INFORMATION
  Report Type: Spontaneous
  Country: HU (occurrence: HU)
  Receive Date: 20200401
  Receipt Date: 20200401
  Transmission Date: 20200713
  Serious: Yes (Other)
  Sender: FDA-Public Use
  Company Number: HU-ALLERGAN-2013500US

PATIENT
  Sex: Female

DRUGS (2)
  1. ESCITALOPRAM OXALATE - BP [Suspect]
     Active Substance: ESCITALOPRAM OXALATE
     Indication: OBSESSIVE-COMPULSIVE DISORDER
     Dosage: UNK
  2. ESCITALOPRAM OXALATE - BP [Suspect]
     Active Substance: ESCITALOPRAM OXALATE
     Indication: DEPRESSION
     Route: 065

REACTIONS (11)
  - Feeling abnormal [Unknown]
  - Dizziness [Unknown]
  - Weight abnormal [Unknown]
  - Haemorrhage [Unknown]
  - Skin reaction [Unknown]
  - Dysgeusia [Unknown]
  - Musculoskeletal pain [Unknown]
  - Aggression [Unknown]
  - Adverse drug reaction [Unknown]
  - Dysuria [Unknown]
  - Condition aggravated [Unknown]
